FAERS Safety Report 8973924 (Version 1)
Quarter: 2012Q4

REPORT INFORMATION
  Report Type: 
  Country: SI (occurrence: SI)
  Receive Date: 20121218
  Receipt Date: 20121218
  Transmission Date: 20130627
  Serious: Yes (Other)
  Sender: FDA-Public Use
  Company Number: SI-GLAXOSMITHKLINE-B0853515A

PATIENT
  Age: 80 Year
  Sex: Female

DRUGS (6)
  1. WELLBUTRIN [Suspect]
     Indication: DEPRESSION
     Dosage: 300MG per day
     Route: 065
     Dates: start: 201209
  2. MIRTAZAPINE [Concomitant]
     Indication: DEPRESSION
     Dosage: 30MG per day
  3. TRAVATAN [Concomitant]
     Indication: GLAUCOMA
     Dosage: 1DROP Per day
  4. SAFLUTAN [Concomitant]
     Indication: GLAUCOMA
  5. MAXITROL EYE DROPS [Concomitant]
  6. NEBILET [Concomitant]
     Dosage: 1TAB Per day

REACTIONS (4)
  - Glaucoma [Not Recovered/Not Resolved]
  - Eye pruritus [Not Recovered/Not Resolved]
  - Eye irritation [Not Recovered/Not Resolved]
  - Eyelid oedema [Not Recovered/Not Resolved]
